FAERS Safety Report 19876952 (Version 1)
Quarter: 2021Q3

REPORT INFORMATION
  Report Type: Spontaneous
  Country: US (occurrence: US)
  Receive Date: 20210924
  Receipt Date: 20210924
  Transmission Date: 20211014
  Serious: No
  Sender: FDA-Public Use
  Company Number: US-GLAXOSMITHKLINE-US2021196417

PATIENT
  Age: 74 Year
  Sex: Female

DRUGS (1)
  1. NUCALA [Suspect]
     Active Substance: MEPOLIZUMAB
     Indication: HYPERTENSIVE URGENCY
     Dosage: 100 MG
     Dates: start: 202008

REACTIONS (2)
  - Product use in unapproved indication [Unknown]
  - Oral surgery [Not Recovered/Not Resolved]

NARRATIVE: CASE EVENT DATE: 20201001
